FAERS Safety Report 5360622-0 (Version None)
Quarter: 2007Q2

REPORT INFORMATION
  Report Type: 
  Country: None (occurrence: None)
  Receive Date: 20070618
  Receipt Date: 20070607
  Transmission Date: 20071010
  Serious: Yes (Other)
  Sender: FDA-Public Use
  Company Number: PHHO2006DE01902

PATIENT
  Age: 64 Year
  Sex: Male

DRUGS (2)
  1. STI 571 VS IFN-ALPHA + CYTARABINE [Suspect]
     Indication: CHRONIC MYELOID LEUKAEMIA
     Dosage: 600 MG, QD
     Route: 048
     Dates: start: 20011120
  2. STI 571 VS IFN-ALPHA + CYTARABINE [Suspect]
     Dosage: 400 MG, QD
     Route: 048
     Dates: start: 20001123, end: 20011026

REACTIONS (3)
  - ACTINIC KERATOSIS [None]
  - MALIGNANT TUMOUR EXCISION [None]
  - SQUAMOUS CELL CARCINOMA OF SKIN [None]
